FAERS Safety Report 21122928 (Version 2)
Quarter: 2022Q3

REPORT INFORMATION
  Report Type: Report from Study
  Country: LB (occurrence: LB)
  Receive Date: 20220724
  Receipt Date: 20220823
  Transmission Date: 20221026
  Serious: Yes (Hospitalization, Other)
  Sender: FDA-Public Use
  Company Number: LB-AMGEN-LBNSL2022121448

PATIENT
  Age: 23 Year
  Sex: Male
  Weight: 65 kg

DRUGS (3)
  1. ADALIMUMAB [Suspect]
     Active Substance: ADALIMUMAB
     Indication: Crohn^s disease
     Dosage: 40 MILLIGRAM, Q2WK
     Route: 058
     Dates: start: 202104, end: 202206
  2. IMURAN [Concomitant]
     Active Substance: AZATHIOPRINE
     Indication: Crohn^s disease
     Dosage: UNK
     Dates: start: 2021
  3. AUGMENTIN [Concomitant]
     Active Substance: AMOXICILLIN\CLAVULANATE POTASSIUM

REACTIONS (8)
  - Anal abscess [Unknown]
  - Anal fistula [Unknown]
  - Therapeutic response delayed [Unknown]
  - Subcutaneous abscess [Not Recovered/Not Resolved]
  - Constipation [Not Recovered/Not Resolved]
  - Synovial cyst [Not Recovered/Not Resolved]
  - Diarrhoea [Unknown]
  - Gastrooesophageal reflux disease [Recovered/Resolved]

NARRATIVE: CASE EVENT DATE: 20210101
